FAERS Safety Report 5330594-3 (Version None)
Quarter: 2007Q2

REPORT INFORMATION
  Report Type: 
  Country: None (occurrence: None)
  Receive Date: 20070516
  Receipt Date: 20070502
  Transmission Date: 20071010
  Serious: Yes (Hospitalization)
  Sender: FDA-Public Use
  Company Number: S07-BEL-02020-01

PATIENT
  Age: 23 Year
  Sex: Female

DRUGS (4)
  1. ESCITALOPRAM OXALATE [Suspect]
     Dosage: 10 MG BID PO
     Route: 048
     Dates: start: 20061101, end: 20061229
  2. ESCITALOPRAM OXALATE [Suspect]
     Dosage: 10 M QD PO
     Route: 048
     Dates: start: 20050101, end: 20061101
  3. SPASMOMEN (OTILONIUM BROMIDE) [Concomitant]
  4. ENTEROL (FURAZOLIDONE) [Concomitant]

REACTIONS (5)
  - GENERAL PHYSICAL HEALTH DETERIORATION [None]
  - RENAL FAILURE [None]
  - RHABDOMYOLYSIS [None]
  - SEROTONIN SYNDROME [None]
  - SYNCOPE [None]
